FAERS Safety Report 8986696 (Version 1)
Quarter: 2012Q4

REPORT INFORMATION
  Report Type: 
  Country: FR (occurrence: FR)
  Receive Date: 20121226
  Receipt Date: 20121226
  Transmission Date: 20130627
  Serious: Yes (Hospitalization)
  Sender: FDA-Public Use
  Company Number: FR-ROCHE-1170221

PATIENT
  Age: 84 Year
  Sex: Female

DRUGS (17)
  1. MABTHERA [Suspect]
     Indication: PRODUCT USED FOR UNKNOWN INDICATION
     Route: 042
     Dates: start: 20120709, end: 20120711
  2. APRANAX [Suspect]
     Indication: PRODUCT USED FOR UNKNOWN INDICATION
     Route: 048
  3. SEROPLEX [Suspect]
     Indication: PRODUCT USED FOR UNKNOWN INDICATION
     Route: 048
  4. CORTANCYL [Suspect]
     Indication: PRODUCT USED FOR UNKNOWN INDICATION
     Route: 048
  5. OROKEN [Concomitant]
     Route: 048
  6. PANTOPRAZOLE [Concomitant]
     Route: 048
  7. DOLIPRANE [Concomitant]
     Route: 048
  8. METHOTREXATE [Concomitant]
  9. SALAZOPYRINE [Concomitant]
  10. PLAQUENIL [Concomitant]
  11. ENBREL [Concomitant]
  12. HUMIRA [Concomitant]
  13. REMICADE [Concomitant]
  14. NAPROXEN [Concomitant]
  15. CEFIXIME [Concomitant]
  16. PANTOPRAZOLE [Concomitant]
  17. PREDNISONE [Concomitant]

REACTIONS (3)
  - Hypertension [Not Recovered/Not Resolved]
  - Intracranial haematoma [Not Recovered/Not Resolved]
  - Hypertensive angiopathy [Not Recovered/Not Resolved]
